FAERS Safety Report 8633948 (Version 4)
Quarter: 2012Q4

REPORT INFORMATION
  Report Type: 
  Country: CO (occurrence: CO)
  Receive Date: 20120626
  Receipt Date: 20120924
  Transmission Date: 20130627
  Serious: Yes (Other)
  Sender: FDA-Public Use
  Company Number: CO-AMGEN-COLSP2012038116

PATIENT
  Age: 87 Year
  Sex: Female

DRUGS (4)
  1. ENBREL [Suspect]
     Indication: RHEUMATOID ARTHRITIS
     Dosage: 50 mg, weekly
     Route: 058
     Dates: start: 20120402
  2. MEDROL                             /00049601/ [Concomitant]
     Dosage: UNK
  3. ASPIRINETAS [Concomitant]
     Dosage: UNK
  4. INFLAXEN [Concomitant]
     Dosage: UNK

REACTIONS (4)
  - Immunodeficiency [Recovered/Resolved]
  - Fatigue [Not Recovered/Not Resolved]
  - Asthenia [Not Recovered/Not Resolved]
  - Eye infection [Recovered/Resolved]
